FAERS Safety Report 24123547 (Version 2)
Quarter: 2024Q3

REPORT INFORMATION
  Report Type: Spontaneous
  Country: US (occurrence: US)
  Receive Date: 20240723
  Receipt Date: 20240808
  Transmission Date: 20241017
  Serious: No
  Sender: OTSUKA
  Company Number: US-OTSUKA-2024_005367

PATIENT
  Age: 67 Year
  Sex: Female
  Weight: 95.25 kg

DRUGS (6)
  1. REXULTI [Suspect]
     Active Substance: BREXPIPRAZOLE
     Indication: Seasonal affective disorder
     Dosage: UNK
     Route: 065
     Dates: start: 202301
  2. REXULTI [Suspect]
     Active Substance: BREXPIPRAZOLE
     Dosage: 4 MG
     Route: 065
  3. ARIPIPRAZOLE [Suspect]
     Active Substance: ARIPIPRAZOLE
     Indication: Tremor
     Dosage: 10 MG
     Route: 065
  4. PRIMIDONE [Concomitant]
     Active Substance: PRIMIDONE
     Indication: Tremor
     Dosage: 50 MG (1 TABLET AT MEALS AND 2 TABLETS AT BEDTIME)
     Route: 065
  5. OZEMPIC [Concomitant]
     Active Substance: SEMAGLUTIDE
     Indication: Weight decreased
     Dosage: UNK
     Route: 065
  6. DULOXETINE [Concomitant]
     Active Substance: DULOXETINE
     Indication: Depression
     Dosage: UNK
     Route: 065

REACTIONS (4)
  - Product use in unapproved indication [Unknown]
  - Therapeutic response unexpected [Unknown]
  - Drug effective for unapproved indication [Unknown]
  - Inability to afford medication [Unknown]

NARRATIVE: CASE EVENT DATE: 20230101
